FAERS Safety Report 19512009 (Version 2)
Quarter: 2022Q1

REPORT INFORMATION
  Report Type: Spontaneous
  Country: DE (occurrence: DE)
  Receive Date: 20210709
  Receipt Date: 20220303
  Transmission Date: 20220424
  Serious: Yes (Death, Life-Threatening, Hospitalization, Other)
  Sender: FDA-Public Use
  Company Number: DE-BAXTER-2021BAX017458

PATIENT
  Age: 67 Year
  Sex: Male

DRUGS (11)
  1. ETORICOXIB [Suspect]
     Active Substance: ETORICOXIB
     Indication: Metastatic malignant melanoma
     Dosage: 60 MILLIGRAM
     Route: 048
     Dates: start: 20141104, end: 20141215
  2. ETORICOXIB [Suspect]
     Active Substance: ETORICOXIB
     Dosage: 60 MILLIGRAM
     Route: 048
     Dates: start: 20141104
  3. PIOGLITAZONE [Suspect]
     Active Substance: PIOGLITAZONE
     Indication: Metastatic malignant melanoma
     Dosage: 60 MILLIGRAM
     Route: 048
     Dates: start: 20141104
  4. DACARBAZINE [Suspect]
     Active Substance: DACARBAZINE
     Indication: Metastatic malignant melanoma
     Dosage: UNK
     Route: 042
  5. TROFOSFAMIDE [Suspect]
     Active Substance: TROFOSFAMIDE
     Indication: Metastatic malignant melanoma
     Dosage: 150 MILLIGRAM
     Route: 048
     Dates: start: 20141104, end: 20141223
  6. TROFOSFAMIDE [Suspect]
     Active Substance: TROFOSFAMIDE
     Dosage: 150 MILLIGRAM
     Dates: start: 20141104
  7. TEMSIROLIMUS [Suspect]
     Active Substance: TEMSIROLIMUS
     Indication: Metastatic malignant melanoma
     Dosage: 25 MILLIGRAM
     Route: 042
     Dates: start: 20141104
  8. ARIXTRA [Concomitant]
     Active Substance: FONDAPARINUX SODIUM
     Indication: Prophylaxis
     Dosage: 2.5 MILLIGRAM, ONCE A DAY
     Route: 058
     Dates: start: 20141205
  9. ENOXAPARIN SODIUM [Concomitant]
     Active Substance: ENOXAPARIN SODIUM
     Indication: Prophylaxis
     Dosage: 0.4 MILLILITER, ONCE A DAY
     Route: 058
     Dates: start: 20141216
  10. CERTOPARIN SODIUM [Concomitant]
     Active Substance: CERTOPARIN SODIUM
     Indication: Prophylaxis
     Dosage: 1 DOSAGE FORM, ONCE A DAY
     Route: 058
     Dates: start: 20141130
  11. IBUPROFEN [Concomitant]
     Active Substance: IBUPROFEN
     Indication: Pain
     Dosage: 1800 MILLIGRAM, ONCE A DAY
     Route: 048
     Dates: start: 20141210

REACTIONS (2)
  - Cerebral haemorrhage [Fatal]
  - Erysipelas [Recovered/Resolved]

NARRATIVE: CASE EVENT DATE: 20141130
